FAERS Safety Report 6501753-9 (Version None)
Quarter: 2009Q4

REPORT INFORMATION
  Report Type: 
  Country: None (occurrence: None)
  Receive Date: 20091216
  Receipt Date: 20091204
  Transmission Date: 20100525
  Serious: Yes (Other)
  Sender: FDA-Public Use
  Company Number: BR-PFIZER INC-2009305986

PATIENT
  Age: 21 Year
  Sex: Female
  Weight: 61 kg

DRUGS (1)
  1. DOSTINEX [Suspect]
     Indication: LACTATION INHIBITION THERAPY
     Dosage: 1 MG, SINGLE
     Route: 048
     Dates: start: 20091101, end: 20091101

REACTIONS (9)
  - ASTHENIA [None]
  - BREAST DISORDER FEMALE [None]
  - BREAST PAIN [None]
  - CRYING [None]
  - CYANOSIS [None]
  - DIZZINESS [None]
  - HEADACHE [None]
  - NAUSEA [None]
  - SYNCOPE [None]
